FAERS Safety Report 6194811-2 (Version None)
Quarter: 2009Q2

REPORT INFORMATION
  Report Type: 
  Country: None (occurrence: None)
  Receive Date: 20090515
  Receipt Date: 20090515
  Transmission Date: 20091009
  Serious: Yes (Disabling)
  Sender: FDA-Public Use
  Company Number: None

PATIENT
  Age: 48 Year
  Sex: Female
  Weight: 71.6683 kg

DRUGS (2)
  1. CYMBALTA [Suspect]
     Indication: FIBROMYALGIA
     Dosage: 1 DAILY ORAL
     Route: 048
     Dates: start: 20080101, end: 20090101
  2. CYMBALTA [Suspect]
     Indication: PAIN
     Dosage: 1 DAILY ORAL
     Route: 048
     Dates: start: 20080101, end: 20090101

REACTIONS (6)
  - DEPRESSION [None]
  - DRUG WITHDRAWAL SYNDROME [None]
  - DYSGEUSIA [None]
  - PAIN [None]
  - SLEEP DISORDER [None]
  - TREMOR [None]
